FAERS Safety Report 11578871 (Version 1)
Quarter: 2015Q3

REPORT INFORMATION
  Report Type: Spontaneous
  Country: FR (occurrence: FR)
  Receive Date: 20150930
  Receipt Date: 20150930
  Transmission Date: 20151125
  Serious: Yes (Other)
  Sender: FDA-Public Use
  Company Number: FR-009507513-1509FRA013694

PATIENT
  Age: 75 Year
  Sex: Female

DRUGS (4)
  1. TIGECYCLINE. [Suspect]
     Active Substance: TIGECYCLINE
     Dosage: 50 MG, BID
  2. COLIMYCINE (COLISTIMETHATE SODIUM) [Suspect]
     Active Substance: COLISTIMETHATE SODIUM
     Indication: BACTERAEMIA
     Route: 065
  3. TIENAM IV 250MG/250MG, POUDRE POUR PERFUSION [Suspect]
     Active Substance: CILASTATIN SODIUM\IMIPENEM
     Indication: BACTERAEMIA
     Route: 065
  4. TIGECYCLINE. [Suspect]
     Active Substance: TIGECYCLINE
     Indication: BACTERAEMIA
     Dosage: 100 MG, BID
     Route: 065

REACTIONS (3)
  - Thrombocytopenia [Recovered/Resolved]
  - Hypofibrinogenaemia [Recovered/Resolved]
  - Cardiac failure [Recovered/Resolved]
